FAERS Safety Report 16795251 (Version 1)
Quarter: 2019Q3

REPORT INFORMATION
  Report Type: Spontaneous
  Country: CH (occurrence: CH)
  Receive Date: 20190911
  Receipt Date: 20190911
  Transmission Date: 20191005
  Serious: Yes (Hospitalization)
  Sender: FDA-Public Use
  Company Number: CH-ASTRAZENECA-2019SF26486

PATIENT
  Age: 30086 Day
  Sex: Male
  Weight: 92 kg

DRUGS (13)
  1. KEPPRA [Concomitant]
     Active Substance: LEVETIRACETAM
     Dosage: TRAITEMENT HABITUEL
     Route: 048
  2. MIRTAZAPINE. [Concomitant]
     Active Substance: MIRTAZAPINE
     Dosage: TRAITEMENT HABITUEL
     Route: 048
  3. PANTOPRAZOLE [Concomitant]
     Active Substance: PANTOPRAZOLE
     Dosage: TRAITEMENT HABITUEL
     Route: 048
  4. FORXIGA [Suspect]
     Active Substance: DAPAGLIFLOZIN
     Indication: DIABETES MELLITUS
     Route: 048
     Dates: end: 20190820
  5. VITARUBIN [Concomitant]
     Active Substance: CYANOCOBALAMIN
     Dosage: TRAITEMENT HABITUEL
     Route: 058
  6. CALCIMAGON [Concomitant]
     Active Substance: CALCIUM
     Dosage: TRAITEMENT HABITUEL
     Route: 048
  7. XARELTO [Concomitant]
     Active Substance: RIVAROXABAN
     Dosage: TRAITEMENT HABITUEL
     Route: 048
  8. ALFUZOSINE [Concomitant]
     Active Substance: ALFUZOSIN HYDROCHLORIDE
     Dosage: TRAITEMENT HABITUEL
     Route: 048
  9. BENERVA [Concomitant]
     Active Substance: THIAMINE HYDROCHLORIDE
     Dosage: TRAITEMENT HABITUEL
     Route: 048
  10. FINASTERIDE. [Concomitant]
     Active Substance: FINASTERIDE
     Dosage: TRAITEMENT HABITUEL
     Route: 048
  11. ACIDE FOLIQUE [Concomitant]
     Active Substance: FOLIC ACID
     Dosage: TRAITEMENT HABITUEL
     Route: 048
  12. STRUCTUM [Concomitant]
     Active Substance: SODIUM CHONDROITIN SULFATE
     Dosage: TRAITEMENT HABITUEL
     Route: 048
  13. GLICLAZIDE [Concomitant]
     Active Substance: GLICLAZIDE
     Dosage: TRAITEMENT HABITUEL
     Route: 048

REACTIONS (2)
  - Systemic candida [Unknown]
  - Candiduria [Unknown]

NARRATIVE: CASE EVENT DATE: 20190814
